FAERS Safety Report 6411958-3 (Version None)
Quarter: 2009Q4

REPORT INFORMATION
  Report Type: 
  Country: None (occurrence: None)
  Receive Date: 20091023
  Receipt Date: 20081112
  Transmission Date: 20100525
  Serious: Yes (Other)
  Sender: FDA-Public Use
  Company Number: ES-JNJFOC-20081102579

PATIENT
  Age: 51 Year
  Sex: Female

DRUGS (7)
  1. LEVOFLOXACIN [Suspect]
     Indication: DRUG USE FOR UNKNOWN INDICATION
     Route: 065
  2. VENLAFAXINE [Suspect]
     Indication: ANTIDEPRESSANT THERAPY
     Route: 065
  3. MIRTAZAPINE [Concomitant]
     Route: 065
  4. BENZODIAZEPINES [Concomitant]
     Route: 065
  5. LEVOTHYROXINE SODIUM [Concomitant]
     Route: 065
  6. BRONCHODILATORS [Concomitant]
     Route: 065
  7. CORTICOIDS [Concomitant]
     Route: 065

REACTIONS (6)
  - ASTHENIA [None]
  - BRONCHIAL HYPERREACTIVITY [None]
  - CHEST PAIN [None]
  - CHOLESTASIS [None]
  - CYTOLYTIC HEPATITIS [None]
  - FATIGUE [None]
